FAERS Safety Report 8956270 (Version 1)
Quarter: 2012Q4

REPORT INFORMATION
  Report Type: 
  Country: CO (occurrence: CO)
  Receive Date: 20121210
  Receipt Date: 20121210
  Transmission Date: 20130627
  Serious: Yes (Death)
  Sender: FDA-Public Use
  Company Number: CO-JNJFOC-20121203667

PATIENT
  Age: 81 Year
  Sex: Female

DRUGS (1)
  1. REMINYL ER [Suspect]
     Indication: AMNESIA
     Route: 048
     Dates: start: 20110725

REACTIONS (2)
  - Staphylococcal infection [Fatal]
  - Hepatitis C [Unknown]
